FAERS Safety Report 9822307 (Version 1)
Quarter: 2014Q1

REPORT INFORMATION
  Report Type: Spontaneous
  Country: IN (occurrence: None)
  Receive Date: 20140115
  Receipt Date: 20140115
  Transmission Date: 20141002
  Serious: Yes (Other)
  Sender: FDA-Public Use
  Company Number: FK201400071

PATIENT
  Age: 56 Year
  Sex: Male

DRUGS (2)
  1. LEVETIRACETAM (MANUFACTURER UNKNOWN) (LEVETIRACETAM) (LEVETIRACETAM) [Suspect]
     Indication: CONVULSION
     Dosage: LOADING DOSE 25 MG/KG
     Route: 042
  2. OXCARBAZEPINE (OXCARBAZEPINE) [Concomitant]

REACTIONS (2)
  - Toxic encephalopathy [None]
  - Toxic encephalopathy [None]
